FAERS Safety Report 9422095 (Version 1)
Quarter: 2013Q3

REPORT INFORMATION
  Report Type: Spontaneous
  Country: US (occurrence: US)
  Receive Date: 20130726
  Receipt Date: 20130726
  Transmission Date: 20140515
  Serious: Yes (Life-Threatening, Hospitalization)
  Sender: FDA-Public Use
  Company Number: US-RANBAXY-2013US-71493

PATIENT
  Age: 73 Year
  Sex: Female

DRUGS (4)
  1. IBUPROFEN [Suspect]
     Indication: HUMERUS FRACTURE
     Dosage: 2400 MG
  2. IBUPROFEN [Suspect]
     Indication: HUMERUS FRACTURE
     Dosage: 2000 MG
     Route: 065
  3. LISINOPRIL [Suspect]
     Indication: DIABETES MELLITUS
     Route: 065
  4. METFORMIN [Suspect]
     Indication: DIABETES MELLITUS
     Route: 065

REACTIONS (2)
  - Renal failure acute [Recovering/Resolving]
  - Hyperkalaemia [Recovering/Resolving]
